FAERS Safety Report 7615732-1 (Version None)
Quarter: 2011Q3

REPORT INFORMATION
  Report Type: 
  Country: None (occurrence: None)
  Receive Date: 20110711
  Receipt Date: 20110322
  Transmission Date: 20111222
  Serious: Yes (Death)
  Sender: FDA-Public Use
  Company Number: 2011CP000124

PATIENT
  Age: 53 Year
  Sex: Male

DRUGS (11)
  1. ZOPICLONE [Concomitant]
  2. THIAMINE [Concomitant]
  3. ACETAMINOPHEN [Suspect]
     Dosage: IV
     Route: 042
  4. OMEPRAZOLE [Concomitant]
  5. TERLIPRESSIN [Concomitant]
  6. PIPERACILLIN AND TAZOBACTAM [Suspect]
  7. CHLORDIAZEPOXIDE [Concomitant]
  8. ACETAMINOPHEN AND CODEINE PHOSPHATE [Concomitant]
  9. PABRINEX [Concomitant]
  10. ACAMPROSATE [Concomitant]
  11. ACETAMINOPHEN [Suspect]

REACTIONS (4)
  - TOXICITY TO VARIOUS AGENTS [None]
  - MULTI-ORGAN FAILURE [None]
  - HEPATIC FAILURE [None]
  - HYPOTENSION [None]
